FAERS Safety Report 13573988 (Version 1)
Quarter: 2017Q2

REPORT INFORMATION
  Report Type: Spontaneous
  Country: US (occurrence: US)
  Receive Date: 20170523
  Receipt Date: 20170523
  Transmission Date: 20170830
  Serious: No
  Sender: FDA-Public Use
  Company Number: US-PFIZER INC-2017220216

PATIENT
  Sex: Male

DRUGS (1)
  1. CHANTIX [Suspect]
     Active Substance: VARENICLINE TARTRATE
     Dosage: UNK

REACTIONS (5)
  - Urinary incontinence [Unknown]
  - Abnormal dreams [Unknown]
  - Memory impairment [Unknown]
  - Somnambulism [Unknown]
  - Fall [Unknown]

NARRATIVE: CASE EVENT DATE: 201705
